FAERS Safety Report 13405886 (Version 1)
Quarter: 2017Q2

REPORT INFORMATION
  Report Type: Spontaneous
  Country: US (occurrence: US)
  Receive Date: 20170405
  Receipt Date: 20170405
  Transmission Date: 20170830
  Serious: No
  Sender: FDA-Public Use
  Company Number: US-ELI_LILLY_AND_COMPANY-US201608001473

PATIENT
  Sex: Female
  Weight: 73.02 kg

DRUGS (3)
  1. CYMBALTA [Suspect]
     Active Substance: DULOXETINE HYDROCHLORIDE
     Dosage: 20 MG, BID
     Route: 048
  2. CYMBALTA [Suspect]
     Active Substance: DULOXETINE HYDROCHLORIDE
     Dosage: 60 MG, QD
     Route: 048
  3. CYMBALTA [Suspect]
     Active Substance: DULOXETINE HYDROCHLORIDE
     Indication: PRODUCT USED FOR UNKNOWN INDICATION
     Dosage: UNK, UNKNOWN
     Route: 065

REACTIONS (14)
  - Nausea [Unknown]
  - Tinnitus [Unknown]
  - Dysphoria [Unknown]
  - Hypomania [Unknown]
  - Drug withdrawal syndrome [Unknown]
  - Headache [Unknown]
  - Affect lability [Unknown]
  - Diarrhoea [Unknown]
  - Sensory disturbance [Unknown]
  - Agitation [Unknown]
  - Vomiting [Unknown]
  - Fatigue [Unknown]
  - Irritability [Unknown]
  - Anxiety [Unknown]
